FAERS Safety Report 21336817 (Version 2)
Quarter: 2022Q3

REPORT INFORMATION
  Report Type: Spontaneous
  Country: SA (occurrence: SA)
  Receive Date: 20220915
  Receipt Date: 20220923
  Transmission Date: 20221027
  Serious: Yes (Other)
  Sender: FDA-Public Use
  Company Number: SA-PFIZER INC-202201152585

PATIENT
  Age: 50 Year
  Sex: Male

DRUGS (1)
  1. DOSTINEX [Suspect]
     Active Substance: CABERGOLINE
     Dosage: 0.5 MG, 2X/WEEK (WEEKLY TWICE) LAST 1.5 YEARS

REACTIONS (3)
  - Suicidal ideation [Unknown]
  - Drug ineffective [Unknown]
  - Libido increased [Unknown]
